FAERS Safety Report 9768590 (Version 1)
Quarter: 2013Q4

REPORT INFORMATION
  Report Type: Spontaneous
  Country: MD (occurrence: MD)
  Receive Date: 20131218
  Receipt Date: 20131218
  Transmission Date: 20140711
  Serious: Yes (Other)
  Sender: FDA-Public Use
  Company Number: MD-GE HEALTHCARE MEDICAL DIAGNOSTICS-OMPQ-PR-1312S-1428

PATIENT
  Age: 49 Year
  Sex: Male
  Weight: 92 kg

DRUGS (4)
  1. OMNIPAQUE [Suspect]
     Indication: HYDRONEPHROSIS
     Route: 042
     Dates: start: 20131112, end: 20131112
  2. OMNIPAQUE [Suspect]
     Indication: DIAGNOSTIC PROCEDURE
  3. NACL [Suspect]
     Indication: UROGRAM
     Route: 042
     Dates: start: 20131112, end: 20131112
  4. DEXAMETHASONE [Concomitant]
     Route: 042
     Dates: start: 20131112, end: 20131112

REACTIONS (1)
  - Hyperthermia [Recovered/Resolved]
